FAERS Safety Report 23564166 (Version 5)
Quarter: 2024Q3

REPORT INFORMATION
  Report Type: Spontaneous
  Country: US (occurrence: US)
  Receive Date: 20240226
  Receipt Date: 20240813
  Transmission Date: 20241017
  Serious: Yes (Other)
  Sender: BAUSCH AND LOMB
  Company Number: US-BAUSCH-BL-2024-002785

PATIENT
  Age: 83 Year
  Sex: Female
  Weight: 51.302 kg

DRUGS (6)
  1. ZEGERID [Suspect]
     Active Substance: OMEPRAZOLE\SODIUM BICARBONATE
     Indication: Gastrooesophageal reflux disease
     Route: 065
  2. ZEGERID [Suspect]
     Active Substance: OMEPRAZOLE\SODIUM BICARBONATE
     Indication: Irritable bowel syndrome
     Dosage: 40 MG/1680 MG, POWDER, 1 PACKET DISSOLVED IN A TABLESPOON OF WATER ONCE DAILY IN THE EVENING
     Route: 045
     Dates: start: 2008
  3. ZEGERID [Suspect]
     Active Substance: OMEPRAZOLE\SODIUM BICARBONATE
     Indication: Gastrooesophageal reflux disease
  4. ASPIRIN [Concomitant]
     Active Substance: ASPIRIN
     Indication: Product used for unknown indication
     Dosage: AS DIRECTED
  5. LIPITOR [Concomitant]
     Active Substance: ATORVASTATIN CALCIUM
     Indication: Product used for unknown indication
  6. DIOVAN [Concomitant]
     Active Substance: VALSARTAN
     Indication: Product used for unknown indication

REACTIONS (15)
  - Parkinson^s disease [Unknown]
  - Ill-defined disorder [Unknown]
  - Gastrointestinal disorder [Unknown]
  - Contusion [Unknown]
  - Throat irritation [Unknown]
  - Vocal cord disorder [Unknown]
  - Pruritus [Unknown]
  - Pain [Unknown]
  - Vomiting [Unknown]
  - Product availability issue [Unknown]
  - Product taste abnormal [Unknown]
  - Therapy interrupted [Unknown]
  - Expired product administered [Unknown]
  - Incorrect product administration duration [Unknown]
  - Patient dissatisfaction with treatment [Unknown]

NARRATIVE: CASE EVENT DATE: 20140101
